FAERS Safety Report 8784130 (Version 1)
Quarter: 2012Q4

REPORT INFORMATION
  Report Type: 
  Country: CA (occurrence: None)
  Receive Date: 20120906
  Receipt Date: 20120906
  Transmission Date: 20130627
  Serious: Yes (Hospitalization)
  Sender: FDA-Public Use
  Company Number: None

PATIENT
  Sex: Female
  Weight: 92.7 kg

DRUGS (2)
  1. FLUDARABINE PHOSPHATE [Suspect]
     Dates: end: 20120817
  2. RITUXIMAB [Suspect]
     Dates: end: 20120817

REACTIONS (4)
  - Neutropenia [None]
  - Haemoglobin decreased [None]
  - Pyrexia [None]
  - Blood pressure decreased [None]
